FAERS Safety Report 5583080-X (Version None)
Quarter: 2008Q1

REPORT INFORMATION
  Report Type: 
  Country: None (occurrence: None)
  Receive Date: 20080107
  Receipt Date: 20080102
  Transmission Date: 20080703
  Serious: Yes (Hospitalization)
  Sender: FDA-Public Use
  Company Number: D0054980A

PATIENT
  Age: 33 Year
  Sex: Male
  Weight: 69 kg

DRUGS (1)
  1. ZYBAN [Suspect]
     Dosage: 150MG PER DAY
     Route: 048
     Dates: start: 20060101, end: 20060201

REACTIONS (10)
  - ANXIETY [None]
  - CONSTIPATION [None]
  - DEPRESSION [None]
  - DIZZINESS [None]
  - FATIGUE [None]
  - HALLUCINATION [None]
  - HOT FLUSH [None]
  - PANIC ATTACK [None]
  - SKIN REACTION [None]
  - SUICIDAL IDEATION [None]
